FAERS Safety Report 16924740 (Version 2)
Quarter: 2019Q4

REPORT INFORMATION
  Report Type: Spontaneous
  Country: US (occurrence: US)
  Receive Date: 20191016
  Receipt Date: 20191119
  Transmission Date: 20200122
  Serious: Yes (Hospitalization)
  Sender: FDA-Public Use
  Company Number: US-PFIZER INC-2019446454

PATIENT
  Age: 82 Year
  Sex: Female
  Weight: 57.14 kg

DRUGS (1)
  1. PREMARIN [Suspect]
     Active Substance: ESTROGENS, CONJUGATED
     Indication: VAGINAL HAEMORRHAGE
     Dosage: UNK, 2X/WEEK (2 X A WEEK 0.625)

REACTIONS (3)
  - Cardiac disorder [Unknown]
  - Off label use [Unknown]
  - Drug effective for unapproved indication [Unknown]
